FAERS Safety Report 6155745-2 (Version None)
Quarter: 2009Q2

REPORT INFORMATION
  Report Type: 
  Country: None (occurrence: None)
  Receive Date: 20090415
  Receipt Date: 20090410
  Transmission Date: 20091009
  Serious: Yes (Hospitalization)
  Sender: FDA-Public Use
  Company Number: US-BRISTOL-MYERS SQUIBB COMPANY-14580963

PATIENT
  Age: 75 Year
  Sex: Female
  Weight: 59 kg

DRUGS (2)
  1. ERBITUX [Suspect]
     Indication: NON-SMALL CELL LUNG CANCER
     Dosage: 1ST COURSE:24DEC08;DATE ASSOCIATED WITH EVT:18MAR09.INT DOSE:400MG/M2 CYC1/DY;250MG/M2CYC1 D8,15,22
     Dates: start: 20090401, end: 20090401
  2. RADIATION THERAPY [Suspect]
     Indication: NON-SMALL CELL LUNG CANCER
     Dosage: 1 DF=6480CGY;NO OF FRACTION:36;NO OF ELAPSED DAYS:50; D8 OF CYC 1 THROUGH END OF CYC 2
     Dates: start: 20081224, end: 20090219

REACTIONS (4)
  - DIASTOLIC DYSFUNCTION [None]
  - EMBOLISM [None]
  - PNEUMONIA [None]
  - TROPONIN I [None]
